FAERS Safety Report 14983684 (Version 1)
Quarter: 2018Q2

REPORT INFORMATION
  Report Type: Spontaneous
  Country: US (occurrence: US)
  Receive Date: 20180607
  Receipt Date: 20180607
  Transmission Date: 20180711
  Serious: No
  Sender: FDA-Public Use
  Company Number: US-PFIZER INC-2018151705

PATIENT
  Sex: Female

DRUGS (15)
  1. TAXOTERE [Suspect]
     Active Substance: DOCETAXEL
     Dosage: 145 MG, CYCLIC (EVERY THREE WEEKS, NUMBER OF CYCLES 3)
     Dates: start: 20120705
  2. PARAPLATIN [Concomitant]
     Active Substance: CARBOPLATIN
     Dosage: 685 MG, UNK
     Dates: start: 20120629
  3. PARAPLATIN [Concomitant]
     Active Substance: CARBOPLATIN
     Dosage: 550 MG, UNK
     Dates: start: 20120802
  4. DOCETAXEL. [Suspect]
     Active Substance: DOCETAXEL
     Dosage: 145 MG, CYCLIC (EVERY THREE WEEKS, NUMBER OF CYCLES 3)
     Dates: start: 20120705
  5. DOCETAXEL. [Suspect]
     Active Substance: DOCETAXEL
     Dosage: 145 MG, CYCLIC (EVERY THREE WEEKS, NUMBER OF CYCLES 3)
     Dates: start: 20120622
  6. PARAPLATIN [Concomitant]
     Active Substance: CARBOPLATIN
     Dosage: 685 MG, UNK
     Dates: start: 20120622
  7. DOCETAXEL. [Suspect]
     Active Substance: DOCETAXEL
     Indication: BREAST CANCER
     Dosage: 145 MG, CYCLIC (EVERY THREE WEEKS, NUMBER OF CYCLES 3)
     Dates: start: 20120601
  8. DOCETAXEL. [Suspect]
     Active Substance: DOCETAXEL
     Dosage: 145 MG, CYCLIC (EVERY THREE WEEKS, NUMBER OF CYCLES 3)
     Dates: start: 20120629
  9. DOCETAXEL. [Suspect]
     Active Substance: DOCETAXEL
     Dosage: 115 MG, CYCLIC (EVERY THREE WEEKS, NUMBER OF CYCLES 3)
     Dates: start: 20120802
  10. PARAPLATIN [Concomitant]
     Active Substance: CARBOPLATIN
     Dosage: 685 MG, UNK
     Dates: start: 20120705
  11. TAXOTERE [Suspect]
     Active Substance: DOCETAXEL
     Indication: BREAST CANCER
     Dosage: 145 MG, CYCLIC (EVERY THREE WEEKS, NUMBER OF CYCLES 3)
     Dates: start: 20120601
  12. TAXOTERE [Suspect]
     Active Substance: DOCETAXEL
     Dosage: 145 MG, CYCLIC (EVERY THREE WEEKS, NUMBER OF CYCLES 3)
     Dates: start: 20120622
  13. TAXOTERE [Suspect]
     Active Substance: DOCETAXEL
     Dosage: 145 MG, CYCLIC (EVERY THREE WEEKS, NUMBER OF CYCLES 3)
     Dates: start: 20120629
  14. TAXOTERE [Suspect]
     Active Substance: DOCETAXEL
     Dosage: 115 MG, CYCLIC (EVERY THREE WEEKS, NUMBER OF CYCLES 3)
     Dates: start: 20120802
  15. PARAPLATIN [Concomitant]
     Active Substance: CARBOPLATIN
     Dosage: 685 MG, UNK
     Dates: start: 20120601

REACTIONS (5)
  - Hair colour changes [Unknown]
  - Madarosis [Not Recovered/Not Resolved]
  - Hair disorder [Unknown]
  - Alopecia [Not Recovered/Not Resolved]
  - Hair texture abnormal [Unknown]
